FAERS Safety Report 6512237-6 (Version None)
Quarter: 2009Q4

REPORT INFORMATION
  Report Type: 
  Country: None (occurrence: None)
  Receive Date: 20091222
  Receipt Date: 20090813
  Transmission Date: 20100525
  Serious: No
  Sender: FDA-Public Use
  Company Number: US-ASTRAZENECA-2009UW21782

PATIENT
  Age: 927 Month
  Sex: Female
  Weight: 81.6 kg

DRUGS (3)
  1. CRESTOR [Suspect]
     Route: 048
     Dates: start: 20090630, end: 20090728
  2. LEVOTHYROXINE SODIUM [Concomitant]
     Indication: HYPOTHYROIDISM
  3. OXYBUTYNIN CHLORIDE [Concomitant]
     Indication: HYPERTONIC BLADDER

REACTIONS (2)
  - MALAISE [None]
  - MYALGIA [None]
